FAERS Safety Report 12234721 (Version 1)
Quarter: 2016Q2

REPORT INFORMATION
  Report Type: Spontaneous
  Country: DK (occurrence: DK)
  Receive Date: 20160404
  Receipt Date: 20160404
  Transmission Date: 20160815
  Serious: Yes (Life-Threatening, Hospitalization)
  Sender: FDA-Public Use
  Company Number: DK-ACTAVIS-2016-06969

PATIENT
  Age: 39 Year
  Sex: Female

DRUGS (3)
  1. PINEX [Suspect]
     Active Substance: ACETAMINOPHEN
     Indication: PAIN
     Dosage: UNK; DOSIS AND STRENGHT: UNKNOWN
     Route: 048
     Dates: end: 20151201
  2. IBUPROFEN ACTAVIS [Suspect]
     Active Substance: IBUPROFEN
     Indication: PAIN
     Dosage: UNK; DOSIS AND STRENGHT: UNKNOWN
     Route: 048
     Dates: end: 20151201
  3. MEZAVANT [Suspect]
     Active Substance: MESALAMINE
     Indication: COLITIS ULCERATIVE
     Dosage: 2400 MG, DAILY
     Route: 048
     Dates: start: 20150615, end: 201601

REACTIONS (3)
  - Alanine aminotransferase increased [Recovering/Resolving]
  - Hepatitis toxic [Recovering/Resolving]
  - Hepatic enzyme increased [Recovering/Resolving]

NARRATIVE: CASE EVENT DATE: 20151201
